FAERS Safety Report 23925438 (Version 1)
Quarter: 2024Q2

REPORT INFORMATION
  Report Type: Spontaneous
  Country: US (occurrence: None)
  Receive Date: 20240530
  Receipt Date: 20240530
  Transmission Date: 20240716
  Serious: Yes (Hospitalization)
  Sender: FDA-Public Use
  Company Number: None

PATIENT
  Age: 64 Year
  Sex: Female
  Weight: 47.2 kg

DRUGS (8)
  1. TYMLOS [Suspect]
     Active Substance: ABALOPARATIDE
     Indication: Osteoporosis
     Dosage: FREQUENCY : DAILY;?
     Route: 058
     Dates: start: 20240428, end: 20240504
  2. ALPRAZOLAM [Concomitant]
     Active Substance: ALPRAZOLAM
  3. BELSOMRA [Concomitant]
     Active Substance: SUVOREXANT
  4. CLONAZEPAM [Concomitant]
     Active Substance: CLONAZEPAM
  5. ADDERALL [Concomitant]
     Active Substance: AMPHETAMINE ASPARTATE\AMPHETAMINE SULFATE\DEXTROAMPHETAMINE SACCHARATE\DEXTROAMPHETAMINE SULFATE
  6. ESCITALOPRAM [Concomitant]
     Active Substance: ESCITALOPRAM OXALATE
  7. SOLIFENACIN [Concomitant]
     Active Substance: SOLIFENACIN
  8. TIZANIDINE [Concomitant]
     Active Substance: TIZANIDINE

REACTIONS (6)
  - Injection site pain [None]
  - Vertigo [None]
  - Back pain [None]
  - Nausea [None]
  - Incontinence [None]
  - Cauda equina syndrome [None]

NARRATIVE: CASE EVENT DATE: 20240501
